FAERS Safety Report 11678387 (Version 3)
Quarter: 2015Q4

REPORT INFORMATION
  Report Type: Spontaneous
  Country: US (occurrence: US)
  Receive Date: 20151027
  Receipt Date: 20151110
  Transmission Date: 20160304
  Serious: No
  Sender: FDA-Public Use
  Company Number: US-ELI_LILLY_AND_COMPANY-US201006006633

PATIENT
  Age: 53 Year
  Sex: Female

DRUGS (7)
  1. FORTEO [Suspect]
     Active Substance: TERIPARATIDE
     Dosage: 20 UG, DAILY (1/D)
  2. FORTEO [Suspect]
     Active Substance: TERIPARATIDE
     Indication: OSTEOPOROSIS
     Dosage: 20 UG, DAILY (1/D)
  3. CORTICOSTEROIDS [Concomitant]
     Active Substance: CORTICOSTEROID NOS
     Indication: THORACIC OUTLET SYNDROME
  4. FORTEO [Suspect]
     Active Substance: TERIPARATIDE
     Dosage: 20 UG, QD
  5. FORTEO [Suspect]
     Active Substance: TERIPARATIDE
     Dosage: 20 UG, QD
  6. FORTEO [Suspect]
     Active Substance: TERIPARATIDE
     Dosage: 20 UG, DAILY (1/D)
  7. NOVOCAIN [Concomitant]
     Active Substance: PROCAINE HYDROCHLORIDE
     Indication: THORACIC OUTLET SYNDROME

REACTIONS (21)
  - Hypersensitivity [Unknown]
  - Asthenia [Unknown]
  - Blood calcium increased [Unknown]
  - Vitamin D decreased [Not Recovered/Not Resolved]
  - Stress [Unknown]
  - Lacrimation increased [Unknown]
  - Periodontal disease [Unknown]
  - Fatigue [Unknown]
  - Chest pain [Not Recovered/Not Resolved]
  - Rhinorrhoea [Unknown]
  - Depression [Unknown]
  - Nausea [Unknown]
  - Thoracic outlet syndrome [Unknown]
  - Myalgia [Not Recovered/Not Resolved]
  - Vomiting [Unknown]
  - Musculoskeletal discomfort [Not Recovered/Not Resolved]
  - Muscle spasms [Recovering/Resolving]
  - Fibromyalgia [Unknown]
  - Dry throat [Unknown]
  - Bone loss [Unknown]
  - Muscular weakness [Unknown]

NARRATIVE: CASE EVENT DATE: 201008
